FAERS Safety Report 6773354-9 (Version None)
Quarter: 2010Q2

REPORT INFORMATION
  Report Type: 
  Country: None (occurrence: None)
  Receive Date: 20100616
  Receipt Date: 20100603
  Transmission Date: 20101027
  Serious: Yes (Hospitalization, Other)
  Sender: FDA-Public Use
  Company Number: CA-GENENTECH-301848

PATIENT
  Sex: Female
  Weight: 97 kg

DRUGS (1)
  1. XOLAIR [Suspect]
     Indication: ASTHMA
     Dosage: 300 MG, 1/MONTH
     Route: 058
     Dates: start: 20060524

REACTIONS (3)
  - ANAPHYLACTIC REACTION [None]
  - ASTHMA [None]
  - HYPERSENSITIVITY [None]
